FAERS Safety Report 5933460-5 (Version None)
Quarter: 2008Q4

REPORT INFORMATION
  Report Type: 
  Country: None (occurrence: None)
  Receive Date: 20081023
  Receipt Date: 20081016
  Transmission Date: 20090506
  Serious: Yes (Hospitalization)
  Sender: FDA-Public Use
  Company Number: 2008BI027634

PATIENT
  Age: 63 Year
  Sex: Female
  Weight: 64.8644 kg

DRUGS (9)
  1. AVONEX [Suspect]
     Indication: MULTIPLE SCLEROSIS
     Dosage: 30 UG; QW; IM
     Route: 030
     Dates: start: 20051001, end: 20071101
  2. ATENOLOL [Concomitant]
  3. HYDROCHLOROTHIAZIDE [Concomitant]
  4. CARBAMAZEPINE [Concomitant]
  5. POTASSIUM CHLORIDE [Concomitant]
  6. IBUPROFEN TABLETS [Concomitant]
  7. ALBUTEROL [Concomitant]
  8. SPIRIVA [Concomitant]
  9. ASPIRIN [Concomitant]

REACTIONS (7)
  - ABDOMINAL PAIN UPPER [None]
  - COLON CANCER [None]
  - CONTUSION [None]
  - HYPOPHAGIA [None]
  - INJECTION SITE PAIN [None]
  - NAUSEA [None]
  - WEIGHT DECREASED [None]
